FAERS Safety Report 7866007-7 (Version None)
Quarter: 2011Q4

REPORT INFORMATION
  Report Type: 
  Country: None (occurrence: None)
  Receive Date: 20111028
  Receipt Date: 20110406
  Transmission Date: 20120403
  Serious: Yes (Other)
  Sender: FDA-Public Use
  Company Number: US-GLAXOSMITHKLINE-A0921682A

PATIENT
  Age: 58 Year
  Sex: Female

DRUGS (3)
  1. ALLEGRA [Concomitant]
  2. ADVAIR DISKUS 100/50 [Suspect]
     Indication: ASTHMA
     Dosage: 1PUFF TWICE PER DAY
     Route: 055
     Dates: start: 20070101, end: 20110323
  3. NEXIUM [Concomitant]

REACTIONS (3)
  - CATARACT [None]
  - MUSCLE SPASMS [None]
  - WEIGHT INCREASED [None]
